FAERS Safety Report 9496905 (Version 4)
Quarter: 2014Q2

REPORT INFORMATION
  Report Type: Spontaneous
  Country: US (occurrence: US)
  Receive Date: 20130904
  Receipt Date: 20140609
  Transmission Date: 20141212
  Serious: Yes (Hospitalization)
  Sender: FDA-Public Use
  Company Number: US-BAYER-2013-105555

PATIENT
  Age: 27 Year
  Sex: Female
  Weight: 57 kg

DRUGS (2)
  1. MIRENA [Suspect]
     Dosage: 20 MCG/24HR, CONT
     Route: 015
     Dates: start: 20050426, end: 20090619
  2. MIRENA [Suspect]
     Dosage: 20 MCG/24HR, CONT
     Route: 015
     Dates: start: 20080401, end: 20090609

REACTIONS (10)
  - Uterine perforation [None]
  - Device dislocation [None]
  - Gastrointestinal injury [None]
  - Device use error [None]
  - Infection [None]
  - Pelvic pain [None]
  - Pelvic pain [None]
  - Injury [None]
  - Medical device pain [None]
  - Depression [None]
